FAERS Safety Report 16978493 (Version 1)
Quarter: 2019Q4

REPORT INFORMATION
  Report Type: Spontaneous
  Country: GB (occurrence: GB)
  Receive Date: 20191031
  Receipt Date: 20191031
  Transmission Date: 20200122
  Serious: Yes (Other)
  Sender: FDA-Public Use
  Company Number: GB-BAYER-2019-192535

PATIENT
  Age: 55 Year
  Sex: Male
  Weight: 89.81 kg

DRUGS (2)
  1. CIPROFLOXACIN MONOHYDROCHLORIDE [Suspect]
     Active Substance: CIPROFLOXACIN
     Indication: URINARY TRACT INFECTION
     Dosage: 1500 MG, QD
     Route: 048
     Dates: start: 20191002, end: 20191006
  2. BACLOFEN. [Concomitant]
     Active Substance: BACLOFEN
     Dosage: 20 MG, QD

REACTIONS (3)
  - Thinking abnormal [Recovering/Resolving]
  - Confusional state [Recovering/Resolving]
  - Violence-related symptom [Recovering/Resolving]

NARRATIVE: CASE EVENT DATE: 20191002
